FAERS Safety Report 24030879 (Version 1)
Quarter: 2024Q2

REPORT INFORMATION
  Report Type: Spontaneous
  Country: AU (occurrence: AU)
  Receive Date: 20240628
  Receipt Date: 20240628
  Transmission Date: 20240716
  Serious: Yes (Other)
  Sender: FDA-Public Use
  Company Number: AU-IMP-2024000430

PATIENT
  Sex: Male

DRUGS (1)
  1. ILEVRO [Suspect]
     Active Substance: NEPAFENAC
     Indication: Uveitis
     Route: 065

REACTIONS (3)
  - Endophthalmitis [Unknown]
  - Corneal oedema [Unknown]
  - Product use in unapproved indication [Unknown]
